FAERS Safety Report 8748702 (Version 2)
Quarter: 2012Q4

REPORT INFORMATION
  Report Type: 
  Country: US (occurrence: US)
  Receive Date: 20120827
  Receipt Date: 20121031
  Transmission Date: 20130627
  Serious: Yes (Death, Hospitalization)
  Sender: FDA-Public Use
  Company Number: US-ROCHE-1104597

PATIENT
  Sex: Female

DRUGS (2)
  1. AVASTIN [Suspect]
     Indication: RECTAL CANCER
     Route: 065
  2. VECTIBIX [Concomitant]
     Indication: PRODUCT USED FOR UNKNOWN INDICATION
     Dosage: 3 doses
     Route: 065

REACTIONS (7)
  - Disease progression [Fatal]
  - Intestinal obstruction [Recovered/Resolved]
  - Abdominal pain [Unknown]
  - Constipation [Unknown]
  - Pain [Unknown]
  - Swelling [Unknown]
  - Urinary retention [Unknown]
